FAERS Safety Report 4339943-6 (Version None)
Quarter: 2004Q2

REPORT INFORMATION
  Report Type: 
  Country: None (occurrence: None)
  Receive Date: 20040416
  Receipt Date: 20040330
  Transmission Date: 20050107
  Serious: Yes (Disabling)
  Sender: FDA-Public Use
  Company Number: ES-GLAXOSMITHKLINE-B0328825A

PATIENT
  Age: 62 Year
  Sex: Male

DRUGS (4)
  1. ZYNTABAC [Suspect]
     Route: 048
     Dates: start: 20040126, end: 20040323
  2. AVANDIA [Suspect]
     Dosage: 4MG PER DAY
     Route: 048
  3. DIANBEN [Suspect]
     Dosage: 1700MG PER DAY
     Route: 048
  4. ADIRO [Suspect]
     Route: 048

REACTIONS (5)
  - CEREBRAL ATROPHY [None]
  - DIFFICULTY IN WALKING [None]
  - DIZZINESS [None]
  - POLYNEUROPATHY [None]
  - PYREXIA [None]
